FAERS Safety Report 13006396 (Version 4)
Quarter: 2017Q1

REPORT INFORMATION
  Report Type: Report from Study
  Country: CA (occurrence: CA)
  Receive Date: 20161207
  Receipt Date: 20170203
  Transmission Date: 20170428
  Serious: Yes (Hospitalization, Other)
  Sender: FDA-Public Use
  Company Number: CA-ROCHE-1863312

PATIENT
  Age: 47 Year
  Sex: Male

DRUGS (7)
  1. COTELLIC [Suspect]
     Active Substance: COBIMETINIB
     Indication: METASTATIC MALIGNANT MELANOMA
     Route: 048
     Dates: start: 20161124, end: 20161130
  2. METONIA [Concomitant]
     Active Substance: METOCLOPRAMIDE
  3. PANTOPRAZOLE [Concomitant]
     Active Substance: PANTOPRAZOLE SODIUM
  4. ZELBORAF [Suspect]
     Active Substance: VEMURAFENIB
     Indication: METASTATIC MALIGNANT MELANOMA
     Route: 048
     Dates: start: 20161124, end: 20161130
  5. SYNTHROID [Concomitant]
     Active Substance: LEVOTHYROXINE SODIUM
  6. OROXINE [Concomitant]
     Active Substance: LEVOTHYROXINE SODIUM
  7. SUPEUDOL [Concomitant]
     Active Substance: OXYCODONE HYDROCHLORIDE

REACTIONS (5)
  - Throat tightness [Unknown]
  - Vomiting [Unknown]
  - Rash [Unknown]
  - Swelling face [Unknown]
  - Acute kidney injury [Not Recovered/Not Resolved]

NARRATIVE: CASE EVENT DATE: 20170107
